FAERS Safety Report 9449677 (Version 1)
Quarter: 2013Q3

REPORT INFORMATION
  Report Type: Spontaneous
  Country: GB (occurrence: GB)
  Receive Date: 20130809
  Receipt Date: 20130809
  Transmission Date: 20140515
  Serious: Yes (Life-Threatening, Hospitalization, Other)
  Sender: FDA-Public Use
  Company Number: GB-TEVA-425193ISR

PATIENT
  Age: 88 Year
  Sex: Female

DRUGS (10)
  1. TAMSULOSIN [Suspect]
     Dosage: 400 UNKNOWN DAILY;
  2. MIRTAZAPINE [Concomitant]
  3. ZOPICLONE [Concomitant]
  4. ANASTROZOLE [Concomitant]
  5. PARACETAMOL [Concomitant]
  6. MACROGOL [Concomitant]
  7. SENNA [Concomitant]
  8. CYCLIZINE [Concomitant]
  9. TRAMADOL [Concomitant]
  10. AMITRIPTYLINE [Concomitant]

REACTIONS (2)
  - Gastrointestinal hypomotility [Recovered/Resolved]
  - Hypokalaemia [Unknown]
